FAERS Safety Report 7757258-0 (Version None)
Quarter: 2011Q3

REPORT INFORMATION
  Report Type: 
  Country: None (occurrence: None)
  Receive Date: 20110916
  Receipt Date: 20110909
  Transmission Date: 20111222
  Serious: Yes (Disabling)
  Sender: FDA-Public Use
  Company Number: CA-PFIZER INC-2011164394

PATIENT
  Age: 2 Year
  Sex: Male
  Weight: 15.873 kg

DRUGS (2)
  1. PROPRANOLOL [Concomitant]
     Dosage: 10 MG, 3X/DAY
     Dates: start: 20110620
  2. RAPAMUNE [Suspect]
     Indication: VASCULAR NEOPLASM
     Dosage: 0.8 ML (1MG/ML), 2X/DAY
     Route: 048
     Dates: start: 20110601

REACTIONS (5)
  - DIET REFUSAL [None]
  - NAUSEA [None]
  - ABDOMINAL DISCOMFORT [None]
  - INFECTION [None]
  - VOMITING [None]
